FAERS Safety Report 10053240 (Version 1)
Quarter: 2014Q2

REPORT INFORMATION
  Report Type: Spontaneous
  Country: IT (occurrence: IT)
  Receive Date: 20140402
  Receipt Date: 20140402
  Transmission Date: 20141212
  Serious: Yes (Hospitalization)
  Sender: FDA-Public Use
  Company Number: IT-GLAXOSMITHKLINE-B0982079A

PATIENT
  Age: 90 Year
  Sex: Male

DRUGS (2)
  1. PLAVIX [Suspect]
     Indication: OEDEMA
     Route: 048
     Dates: start: 20140101, end: 20140129
  2. ARIXTRA [Suspect]
     Indication: WALDENSTROM^S MACROGLOBULINAEMIA
     Route: 058
     Dates: start: 20140101, end: 20140129

REACTIONS (1)
  - Melaena [Unknown]
